FAERS Safety Report 5801681-8 (Version None)
Quarter: 2008Q3

REPORT INFORMATION
  Report Type: 
  Country: None (occurrence: None)
  Receive Date: 20080707
  Receipt Date: 20080625
  Transmission Date: 20090109
  Serious: Yes (Other)
  Sender: FDA-Public Use
  Company Number: B0524454A

PATIENT
  Age: 60 Year
  Sex: Male
  Weight: 94 kg

DRUGS (8)
  1. KIVEXA [Suspect]
     Indication: HIV INFECTION
     Dosage: 1TAB PER DAY
     Route: 048
     Dates: start: 20080520, end: 20080528
  2. COMBIVIR [Suspect]
     Indication: HIV INFECTION
     Route: 065
     Dates: start: 19990101, end: 20080501
  3. REYATAZ [Concomitant]
     Indication: HIV INFECTION
     Dosage: 300MG PER DAY
     Route: 048
     Dates: start: 20070423
  4. ALLOPURINOL [Concomitant]
     Indication: GOUT
     Dosage: 1TAB PER DAY
     Route: 048
     Dates: start: 19990101
  5. NORVIR [Concomitant]
     Indication: HIV INFECTION
     Dosage: 100MG PER DAY
     Route: 048
     Dates: start: 20070423
  6. HYTRINE [Concomitant]
     Dosage: 5MG PER DAY
     Route: 048
     Dates: start: 19990101
  7. NEULEPTIL [Concomitant]
     Dosage: .5MG PER DAY
     Route: 048
     Dates: start: 20020101
  8. ZOLOFT [Concomitant]
     Dosage: 25MG PER DAY
     Route: 048
     Dates: start: 20020101

REACTIONS (20)
  - ABDOMINAL PAIN [None]
  - BLOOD ALKALINE PHOSPHATASE DECREASED [None]
  - BLOOD BILIRUBIN INCREASED [None]
  - BLOOD BILIRUBIN UNCONJUGATED INCREASED [None]
  - BLOOD CREATINE PHOSPHOKINASE INCREASED [None]
  - BLOOD GLUCOSE INCREASED [None]
  - CIRCULATORY COLLAPSE [None]
  - DIARRHOEA [None]
  - DIZZINESS [None]
  - DRUG HYPERSENSITIVITY [None]
  - FATIGUE [None]
  - HEADACHE [None]
  - HYPOTENSION [None]
  - MALAISE [None]
  - MEAN CELL HAEMOGLOBIN INCREASED [None]
  - MEAN CELL VOLUME INCREASED [None]
  - MUSCLE FATIGUE [None]
  - NAUSEA [None]
  - PYREXIA [None]
  - VOMITING [None]
